FAERS Safety Report 26087302 (Version 1)
Quarter: 2025Q4

REPORT INFORMATION
  Report Type: Spontaneous
  Country: US (occurrence: None)
  Receive Date: 20251124
  Receipt Date: 20251124
  Transmission Date: 20260117
  Serious: Yes (Hospitalization)
  Sender: FDA-CTU
  Company Number: None

PATIENT
  Sex: Female

DRUGS (1)
  1. WINREVAIR [Suspect]
     Active Substance: SOTATERCEPT-CSRK
     Indication: Pulmonary arterial hypertension
     Dosage: ?1.4 ML EVERY 3 WEEKS SUBCUTANEOUS
     Route: 058
     Dates: start: 20250821

REACTIONS (4)
  - Pyrexia [None]
  - Systemic lupus erythematosus [None]
  - Condition aggravated [None]
  - Injection site pain [None]
